FAERS Safety Report 4784662-5 (Version None)
Quarter: 2005Q3

REPORT INFORMATION
  Report Type: 
  Country: None (occurrence: None)
  Receive Date: 20050929
  Receipt Date: 20050929
  Transmission Date: 20060218
  Serious: Yes (Hospitalization, Disabling)
  Sender: FDA-Public Use
  Company Number: None

PATIENT
  Sex: Male
  Weight: 81.6475 kg

DRUGS (1)
  1. VIOXX [Suspect]
     Dates: start: 19990301, end: 20001001

REACTIONS (1)
  - CORONARY ARTERY SURGERY [None]
